FAERS Safety Report 19389994 (Version 2)
Quarter: 2021Q2

REPORT INFORMATION
  Report Type: Report from Study
  Country: US (occurrence: US)
  Receive Date: 20210608
  Receipt Date: 20210615
  Transmission Date: 20210717
  Serious: Yes (Hospitalization)
  Sender: FDA-Public Use
  Company Number: US-EISAI MEDICAL RESEARCH-EC-2021-093837

PATIENT
  Age: 80 Year
  Sex: Male

DRUGS (1)
  1. LENVIMA [Suspect]
     Active Substance: LENVATINIB
     Indication: HEPATIC CANCER
     Route: 048
     Dates: start: 20210520, end: 20210526

REACTIONS (12)
  - Decreased appetite [Recovering/Resolving]
  - Cardiac failure congestive [Unknown]
  - Dry mouth [Not Recovered/Not Resolved]
  - Oral discomfort [Recovering/Resolving]
  - Laboratory test abnormal [Unknown]
  - Blood pressure increased [Unknown]
  - Asthenia [Recovering/Resolving]
  - Dyspnoea [Recovering/Resolving]
  - Oral pain [Recovering/Resolving]
  - Fluid retention [Unknown]
  - Pyrexia [Recovering/Resolving]
  - Diarrhoea [Recovering/Resolving]

NARRATIVE: CASE EVENT DATE: 202105
